FAERS Safety Report 10761698 (Version 1)
Quarter: 2015Q1

REPORT INFORMATION
  Report Type: Spontaneous
  Country: US (occurrence: None)
  Receive Date: 20150128
  Receipt Date: 20150128
  Transmission Date: 20150721
  Serious: Yes (Death)
  Sender: FDA-Public Use
  Company Number: 1460586

PATIENT
  Age: 71 Year
  Sex: Male

DRUGS (5)
  1. RITUXAN [Suspect]
     Active Substance: RITUXIMAB
     Indication: PRODUCT USED FOR UNKNOWN INDICATION
  2. BABY ASPIRIN (ASPIRIN) [Concomitant]
  3. IMBRUVICA [Concomitant]
     Active Substance: IBRUTINIB
  4. FISH OIL [Concomitant]
     Active Substance: FISH OIL
  5. MEGESTROL [Concomitant]
     Active Substance: MEGESTROL

REACTIONS (1)
  - Anaphylactic shock [None]

NARRATIVE: CASE EVENT DATE: 201307
